FAERS Safety Report 7396389-4 (Version None)
Quarter: 2011Q2

REPORT INFORMATION
  Report Type: 
  Country: None (occurrence: None)
  Receive Date: 20110406
  Receipt Date: 20110310
  Transmission Date: 20111010
  Serious: No
  Sender: FDA-Public Use
  Company Number: US-B.I. PHARMACEUTICALS,INC./RIDGEFIELD-2011-BP-07674BP

PATIENT
  Sex: Male

DRUGS (4)
  1. PRADAXA [Suspect]
     Indication: ATRIAL FIBRILLATION
     Dosage: 300 MG
     Route: 048
     Dates: start: 20110101
  2. AMIODARONE HCL [Concomitant]
     Indication: ATRIAL FIBRILLATION
  3. TOPROL-XL [Concomitant]
     Indication: ATRIAL FIBRILLATION
  4. MULTIVITAMIN [Concomitant]
     Indication: PROPHYLAXIS

REACTIONS (2)
  - BREAST TENDERNESS [None]
  - GYNAECOMASTIA [None]
